FAERS Safety Report 5683344-5 (Version None)
Quarter: 2008Q1

REPORT INFORMATION
  Report Type: 
  Country: None (occurrence: None)
  Receive Date: 20080327
  Receipt Date: 20080315
  Transmission Date: 20080703
  Serious: Yes (Hospitalization, Other)
  Sender: FDA-Public Use
  Company Number: US-PFIZER INC-2008024270

PATIENT
  Sex: Female
  Weight: 88.636 kg

DRUGS (6)
  1. DILANTIN [Suspect]
     Indication: GRAND MAL CONVULSION
  2. DILANTIN [Suspect]
     Indication: GRAND MAL CONVULSION
     Dates: start: 20080301
  3. PENICILLIN [Suspect]
     Indication: SURGERY
  4. PHENOBARBITAL TAB [Suspect]
     Indication: SURGERY
  5. PROTONIX [Concomitant]
  6. ALEVE [Concomitant]

REACTIONS (7)
  - ACCIDENT [None]
  - BLISTER [None]
  - HYPERSENSITIVITY [None]
  - LOWER LIMB FRACTURE [None]
  - RASH ERYTHEMATOUS [None]
  - SKIN BURNING SENSATION [None]
  - URTICARIA [None]
